FAERS Safety Report 11309802 (Version 1)
Quarter: 2015Q3

REPORT INFORMATION
  Report Type: Report from Study
  Country: US (occurrence: US)
  Receive Date: 20150724
  Receipt Date: 20150724
  Transmission Date: 20151125
  Serious: Yes (Hospitalization)
  Sender: FDA-Public Use
  Company Number: US-GILEAD-2015-0164409

PATIENT
  Age: 17 Year
  Sex: Female

DRUGS (4)
  1. AZTREONAM LYSINE [Suspect]
     Active Substance: AZTREONAM LYSINE
     Indication: SCOLIOSIS
  2. AZTREONAM LYSINE [Suspect]
     Active Substance: AZTREONAM LYSINE
     Indication: INFECTIVE EXACERBATION OF BRONCHIECTASIS
     Dosage: 75 MG, UNK
     Route: 055
     Dates: start: 20150601
  3. AZTREONAM LYSINE [Suspect]
     Active Substance: AZTREONAM LYSINE
     Indication: GASTROOESOPHAGEAL REFLUX DISEASE
  4. AZTREONAM LYSINE [Suspect]
     Active Substance: AZTREONAM LYSINE
     Indication: TRACHEOSTOMY

REACTIONS (1)
  - Skin lesion [Unknown]
